FAERS Safety Report 5235214-4 (Version None)
Quarter: 2007Q1

REPORT INFORMATION
  Report Type: 
  Country: None (occurrence: None)
  Receive Date: 20070208
  Receipt Date: 20070208
  Transmission Date: 20070707
  Serious: Yes (Life-Threatening)
  Sender: FDA-Public Use
  Company Number: None

PATIENT
  Age: 50 Year
  Sex: Female
  Weight: 58.9676 kg

DRUGS (6)
  1. LEXAPRO [Suspect]
     Indication: BIPOLAR DISORDER
     Dosage: 15 MG ONCE A DAY
     Dates: start: 20021105, end: 20030118
  2. LEXAPRO [Suspect]
     Indication: BIPOLAR DISORDER
     Dosage: 10  MG ONCE A DAY
     Dates: start: 20030118, end: 20030620
  3. WELLBUTRIN [Concomitant]
  4. ZYPREXA [Concomitant]
  5. REMERON [Concomitant]
  6. CLONAZEPAM [Concomitant]

REACTIONS (5)
  - FEELING ABNORMAL [None]
  - IRRITABILITY [None]
  - PAIN [None]
  - SUICIDAL IDEATION [None]
  - TREMOR [None]
